FAERS Safety Report 6096069-1 (Version None)
Quarter: 2009Q1

REPORT INFORMATION
  Report Type: 
  Country: None (occurrence: None)
  Receive Date: 20090227
  Receipt Date: 20080825
  Transmission Date: 20090719
  Serious: No
  Sender: FDA-Public Use
  Company Number: A0744127A

PATIENT
  Age: 60 Year
  Sex: Female

DRUGS (4)
  1. LAMICTAL [Suspect]
     Indication: BIPOLAR DISORDER
     Dosage: 350MG PER DAY
     Route: 048
     Dates: start: 20070801
  2. ABILIFY [Concomitant]
  3. LEXAPRO [Concomitant]
  4. THYROID TAB [Concomitant]

REACTIONS (1)
  - RASH PAPULAR [None]
